FAERS Safety Report 8365801-6 (Version None)
Quarter: 2012Q2

REPORT INFORMATION
  Report Type: 
  Country: None (occurrence: None)
  Receive Date: 20120517
  Receipt Date: 20120511
  Transmission Date: 20120825
  Serious: Yes (Hospitalization, Other)
  Sender: FDA-Public Use
  Company Number: US-AMGEN-USASP2012029911

PATIENT
  Age: 60 Year
  Sex: Male

DRUGS (1)
  1. ENBREL [Suspect]
     Indication: RHEUMATOID ARTHRITIS
     Dosage: 50 MG, QWK
     Dates: start: 20120401

REACTIONS (11)
  - LUNG NEOPLASM [None]
  - AGITATION [None]
  - INSOMNIA [None]
  - INJECTION SITE REACTION [None]
  - HEART RATE INCREASED [None]
  - INJECTION SITE ERYTHEMA [None]
  - FLUSHING [None]
  - INJECTION SITE PRURITUS [None]
  - HERPES ZOSTER [None]
  - SYNCOPE [None]
  - INJECTION SITE SWELLING [None]
